FAERS Safety Report 8590702 (Version 3)
Quarter: 2012Q4

REPORT INFORMATION
  Report Type: 
  Country: US (occurrence: US)
  Receive Date: 20120601
  Receipt Date: 20121123
  Transmission Date: 20130627
  Serious: Yes (Other)
  Sender: FDA-Public Use
  Company Number: US-AMGEN-USASP2012019493

PATIENT
  Age: 59 Year
  Sex: Female
  Weight: 70.07 kg

DRUGS (14)
  1. PROLIA [Suspect]
     Indication: OSTEOPOROSIS POSTMENOPAUSAL
     Dosage: 60 mg, q6mo
     Route: 058
     Dates: start: 20110605
  2. PROLIA [Suspect]
     Dosage: 60 mg, q6mo
     Route: 058
     Dates: start: 201112
  3. THYROID HORMONES [Concomitant]
     Dosage: UNK
  4. ANTIDEPRESSANTS [Concomitant]
     Dosage: UNK
  5. ANXIOLYTICS [Concomitant]
     Dosage: UNK
  6. IBUPROFEN [Concomitant]
     Dosage: UNK
  7. NORCO [Concomitant]
     Dosage: UNK
  8. ADRENALINE                         /00003901/ [Concomitant]
     Dosage: UNK
  9. SIMVASTATIN [Concomitant]
     Dosage: UNK
  10. FLUOXETINE [Concomitant]
     Dosage: UNK
  11. HYDROCORTISONE [Concomitant]
     Dosage: UNK
  12. LORAZEPAM [Concomitant]
     Dosage: UNK
  13. PROZAC [Concomitant]
     Dosage: UNK
  14. VITAMIN D NOS [Concomitant]
     Dosage: UNK

REACTIONS (15)
  - Pain in jaw [Unknown]
  - Osteomyelitis [Unknown]
  - Primary sequestrum [Unknown]
  - Tooth infection [Recovered/Resolved]
  - Exostosis of jaw [Unknown]
  - Osteonecrosis of jaw [Not Recovered/Not Resolved]
  - Oral pain [Not Recovered/Not Resolved]
  - Bone pain [Unknown]
  - Tooth fracture [Recovered/Resolved]
  - Mouth ulceration [Unknown]
  - Oedema mouth [Recovering/Resolving]
  - Secretion discharge [Unknown]
  - Gingival erythema [Unknown]
  - Impaired healing [Unknown]
  - Pain in extremity [Recovered/Resolved]
